FAERS Safety Report 4591795-5 (Version None)
Quarter: 2005Q1

REPORT INFORMATION
  Report Type: 
  Country: None (occurrence: None)
  Receive Date: 20050218
  Receipt Date: 20050207
  Transmission Date: 20050727
  Serious: Yes (Hospitalization)
  Sender: FDA-Public Use
  Company Number: USA-2005-0018723

PATIENT
  Age: 54 Year
  Sex: Male

DRUGS (5)
  1. OXYCONTIN [Suspect]
     Indication: PAIN
     Dosage: SEE IMAGE
     Dates: start: 20041101
  2. SENOKOT [Concomitant]
  3. LISINOPRIL [Concomitant]
  4. OXYCONTIN [Suspect]
     Dosage: 40 MG, Q12H
  5. OXYCONTIN [Suspect]
     Dosage: 20 MG, Q12H

REACTIONS (8)
  - CONSTIPATION [None]
  - DIARRHOEA [None]
  - DRUG INEFFECTIVE [None]
  - DRUG WITHDRAWAL SYNDROME [None]
  - HALLUCINATION [None]
  - INADEQUATE ANALGESIA [None]
  - STAPHYLOCOCCAL INFECTION [None]
  - STOOL ANALYSIS ABNORMAL [None]
